FAERS Safety Report 5842281-3 (Version None)
Quarter: 2008Q3

REPORT INFORMATION
  Report Type: 
  Country: None (occurrence: None)
  Receive Date: 20080812
  Receipt Date: 20080728
  Transmission Date: 20090109
  Serious: Yes (Hospitalization, Other)
  Sender: FDA-Public Use
  Company Number: PHHY2008BR15392

PATIENT
  Age: 52 Year
  Sex: Male

DRUGS (2)
  1. PREXIGE [Suspect]
     Indication: BACK PAIN
     Dosage: 400 MG
     Route: 048
  2. VOLTAREN [Suspect]
     Dosage: 75 MG / 3 ML 5 AMP

REACTIONS (6)
  - BACK PAIN [None]
  - CARDIAC HYPERTROPHY [None]
  - CHEST PAIN [None]
  - INFARCTION [None]
  - SURGERY [None]
  - WEIGHT DECREASED [None]
